FAERS Safety Report 24314731 (Version 1)
Quarter: 2024Q3

REPORT INFORMATION
  Report Type: Spontaneous
  Country: US (occurrence: US)
  Receive Date: 20240913
  Receipt Date: 20240913
  Transmission Date: 20241016
  Serious: Yes (Other)
  Sender: AMNEAL
  Company Number: US-AMNEAL PHARMACEUTICALS-2024-AMRX-03316

PATIENT
  Age: 67 Year
  Sex: Male

DRUGS (3)
  1. AZACITIDINE [Suspect]
     Active Substance: AZACITIDINE
     Indication: Blast crisis in myelogenous leukaemia
     Dosage: UNK
     Route: 065
  2. FYLNETRA [Suspect]
     Active Substance: PEGFILGRASTIM-PBBK
     Indication: Prophylaxis
     Dosage: UNK
     Route: 065
     Dates: start: 20240408
  3. VENETOCLAX [Suspect]
     Active Substance: VENETOCLAX
     Indication: Blast crisis in myelogenous leukaemia
     Dosage: UNK
     Route: 065

REACTIONS (1)
  - Splenic infarction [Unknown]
